FAERS Safety Report 4901913-4 (Version None)
Quarter: 2006Q1

REPORT INFORMATION
  Report Type: 
  Country: None (occurrence: None)
  Receive Date: 20060202
  Receipt Date: 20060202
  Transmission Date: 20060701
  Serious: Yes (Disabling)
  Sender: FDA-Public Use
  Company Number: None

PATIENT
  Age: 53 Year
  Sex: Female
  Weight: 62.5964 kg

DRUGS (3)
  1. OLANZAPINE [Suspect]
     Indication: DEPRESSION
     Dosage: 1 PO Q HS
     Route: 048
     Dates: start: 20010101, end: 20040101
  2. OLANZAPINE [Suspect]
     Indication: POST-TRAUMATIC STRESS DISORDER
     Dosage: 1 PO Q HS
     Route: 048
     Dates: start: 20010101, end: 20040101
  3. OLANZAPINE [Suspect]
     Indication: PSYCHOTIC DISORDER
     Dosage: 1 PO Q HS
     Route: 048
     Dates: start: 20010101, end: 20040101

REACTIONS (4)
  - DYSARTHRIA [None]
  - HEMIPARESIS [None]
  - LOSS OF CONSCIOUSNESS [None]
  - TREMOR [None]
